FAERS Safety Report 4371026-1 (Version None)
Quarter: 2004Q2

REPORT INFORMATION
  Report Type: 
  Country: None (occurrence: None)
  Receive Date: 20040527
  Receipt Date: 20040513
  Transmission Date: 20050107
  Serious: Yes (Hospitalization)
  Sender: FDA-Public Use
  Company Number: 2004-DE-02837GD

PATIENT
  Age: 10 Year
  Sex: Female

DRUGS (8)
  1. PREDNISONE TAB [Suspect]
     Indication: CROHN'S DISEASE
     Dosage: 40 MG
  2. PREDNISONE TAB [Suspect]
     Indication: OSTEOMYELITIS
     Dosage: 40 MG
  3. AZATHIOPRINE [Suspect]
     Indication: CROHN'S DISEASE
     Dosage: 50 MG DAILY, THEN DOSE INCREASED TO 100 MG DAILY FOR A PERIOD OF TIME
  4. AZATHIOPRINE [Suspect]
     Indication: OSTEOMYELITIS
     Dosage: 50 MG DAILY, THEN DOSE INCREASED TO 100 MG DAILY FOR A PERIOD OF TIME
  5. METRONIDAZOLE [Suspect]
     Indication: CROHN'S DISEASE
     Dosage: 250 MG 3 TIMES DAILY
  6. METRONIDAZOLE [Suspect]
     Indication: OSTEOMYELITIS
     Dosage: 250 MG 3 TIMES DAILY
  7. MERCAPTOPURINE [Suspect]
     Indication: CROHN'S DISEASE
     Dosage: 50 MG DAILY; 0.9 MG/KG
  8. MERCAPTOPURINE [Suspect]
     Indication: OSTEOMYELITIS
     Dosage: 50 MG DAILY; 0.9 MG/KG

REACTIONS (17)
  - ABDOMINAL PAIN [None]
  - ABSCESS INTESTINAL [None]
  - ANOREXIA [None]
  - BONE DISORDER [None]
  - COLITIS [None]
  - CROHN'S DISEASE [None]
  - DIARRHOEA HAEMORRHAGIC [None]
  - DRUG INEFFECTIVE [None]
  - FATIGUE [None]
  - HERPES SIMPLEX [None]
  - HYPERGLYCAEMIA [None]
  - LIPIDS DECREASED [None]
  - PYREXIA [None]
  - SCLERAL DISORDER [None]
  - STOMATITIS [None]
  - VAGINITIS [None]
  - WEIGHT DECREASED [None]
